FAERS Safety Report 6602236-8 (Version None)
Quarter: 2010Q1

REPORT INFORMATION
  Report Type: 
  Country: None (occurrence: None)
  Receive Date: 20100225
  Receipt Date: 20100218
  Transmission Date: 20100710
  Serious: Yes (Death)
  Sender: FDA-Public Use
  Company Number: US-NAPPMUNDI-USA-2010-0041995

PATIENT
  Sex: Male

DRUGS (3)
  1. OXYCONTIN [Suspect]
     Indication: PAIN
     Dosage: 160 MG, BID
     Dates: start: 20070807
  2. OXYCONTIN [Suspect]
     Dosage: 80 MG, TID
     Dates: start: 20050601, end: 20070806
  3. OXYCONTIN [Suspect]
     Dosage: UNK
     Dates: end: 20050411

REACTIONS (1)
  - DEATH [None]
